FAERS Safety Report 7672791-8 (Version None)
Quarter: 2011Q3

REPORT INFORMATION
  Report Type: 
  Country: None (occurrence: None)
  Receive Date: 20110809
  Receipt Date: 20110729
  Transmission Date: 20111222
  Serious: Yes (Other)
  Sender: FDA-Public Use
  Company Number: US-AMGEN-USASP2011031124

PATIENT
  Age: 54 Year
  Sex: Female

DRUGS (1)
  1. ENBREL [Suspect]
     Indication: RHEUMATOID ARTHRITIS
     Dosage: 50 MG, QWK
     Dates: start: 20110511, end: 20110525

REACTIONS (10)
  - SUDDEN ONSET OF SLEEP [None]
  - FURUNCLE [None]
  - LOCALISED INFECTION [None]
  - OROPHARYNGEAL PAIN [None]
  - INJECTION SITE PAIN [None]
  - PAIN [None]
  - INJECTION SITE HAEMORRHAGE [None]
  - FATIGUE [None]
  - INJECTION SITE HAEMATOMA [None]
  - DIARRHOEA [None]
